FAERS Safety Report 6475605-7 (Version None)
Quarter: 2009Q4

REPORT INFORMATION
  Report Type: 
  Country: None (occurrence: None)
  Receive Date: 20091204
  Receipt Date: 20091126
  Transmission Date: 20100525
  Serious: Yes (Other)
  Sender: FDA-Public Use
  Company Number: BR-BRISTOL-MYERS SQUIBB COMPANY-14581615

PATIENT
  Age: 20 Year
  Sex: Male
  Weight: 55 kg

DRUGS (12)
  1. BECENUN PWDR FOR INJ 100 MG [Suspect]
     Indication: BONE MARROW CONDITIONING REGIMEN
     Route: 042
     Dates: start: 20090325, end: 20090325
  2. FLUCONAZOLE [Concomitant]
  3. ALBENDAZOLE [Concomitant]
  4. OMEPRAZOLE [Concomitant]
  5. ACYCLOVIR [Concomitant]
  6. BACTRIM [Concomitant]
  7. PLASIL [Concomitant]
  8. DRAMIN [Concomitant]
  9. ONDANSETRON [Concomitant]
  10. BENADRYL [Concomitant]
  11. FLEBOCORTID [Concomitant]
  12. ACETAMINOPHEN [Concomitant]

REACTIONS (4)
  - BURNING SENSATION [None]
  - ERYTHEMA [None]
  - FACIAL PAIN [None]
  - GRAND MAL CONVULSION [None]
